FAERS Safety Report 13210638 (Version 1)
Quarter: 2017Q1

REPORT INFORMATION
  Report Type: Spontaneous
  Country: US (occurrence: US)
  Receive Date: 20170209
  Receipt Date: 20170209
  Transmission Date: 20170428
  Serious: Yes (Life-Threatening, Disabling, Other)
  Sender: FDA-Public Use
  Company Number: None

PATIENT
  Age: 63 Year
  Sex: Female
  Weight: 69.3 kg

DRUGS (10)
  1. BUPROPION HYDROCHLORIDE XL [Suspect]
     Active Substance: BUPROPION HYDROCHLORIDE
     Indication: POST-TRAUMATIC STRESS DISORDER
     Dosage: ?          QUANTITY:1 TABLET(S);?
     Route: 048
     Dates: start: 20161003, end: 20170127
  2. BUPROPION HYDROCHLORIDE XL [Suspect]
     Active Substance: BUPROPION HYDROCHLORIDE
     Indication: ANXIETY
     Dosage: ?          QUANTITY:1 TABLET(S);?
     Route: 048
     Dates: start: 20161003, end: 20170127
  3. BUPROPION HYDROCHLORIDE XL [Suspect]
     Active Substance: BUPROPION HYDROCHLORIDE
     Indication: MAJOR DEPRESSION
     Dosage: ?          QUANTITY:1 TABLET(S);?
     Route: 048
     Dates: start: 20161003, end: 20170127
  4. ASMANEX [Concomitant]
     Active Substance: MOMETASONE FUROATE
  5. VITAMIN B12 [Concomitant]
     Active Substance: CYANOCOBALAMIN
  6. ZINC. [Concomitant]
     Active Substance: ZINC
  7. VITAMIN D [Concomitant]
     Active Substance: CHOLECALCIFEROL
  8. NASONEX [Concomitant]
     Active Substance: MOMETASONE FUROATE
  9. CHIA SEED [Concomitant]
  10. HORSECHESTNUT [Concomitant]

REACTIONS (14)
  - Bladder disorder [None]
  - Night blindness [None]
  - Vertigo [None]
  - Seizure [None]
  - Exhibitionism [None]
  - Bruxism [None]
  - Gastrointestinal disorder [None]
  - Road traffic accident [None]
  - Restless legs syndrome [None]
  - Dizziness [None]
  - Vitreous floaters [None]
  - Product substitution issue [None]
  - Breast tenderness [None]
  - Breast enlargement [None]

NARRATIVE: CASE EVENT DATE: 20161212
